FAERS Safety Report 12930986 (Version 2)
Quarter: 2016Q4

REPORT INFORMATION
  Report Type: Spontaneous
  Country: US (occurrence: US)
  Receive Date: 20161110
  Receipt Date: 20161208
  Transmission Date: 20170207
  Serious: Yes (Death)
  Sender: FDA-Public Use
  Company Number: US-EXELIXIS-CABO-14004001

PATIENT
  Sex: Male

DRUGS (35)
  1. TESTOSTERONE. [Concomitant]
     Active Substance: TESTOSTERONE
  2. PEPCID [Concomitant]
     Active Substance: FAMOTIDINE
  3. BEET ROOT EXTRACT [Concomitant]
  4. MINOCYCLINE [Concomitant]
     Active Substance: MINOCYCLINE\MINOCYCLINE HYDROCHLORIDE
  5. MARINOL [Concomitant]
     Active Substance: DRONABINOL
  6. SAW PALMETTO [Concomitant]
     Active Substance: SAW PALMETTO
  7. VITAMIN D3 [Concomitant]
     Active Substance: CHOLECALCIFEROL
  8. MAGNESIUM [Concomitant]
     Active Substance: MAGNESIUM
  9. GLUTAMINE [Concomitant]
     Active Substance: GLUTAMINE
  10. CLONIDINE. [Concomitant]
     Active Substance: CLONIDINE
  11. FENTANYL. [Concomitant]
     Active Substance: FENTANYL
  12. LOVENOX [Concomitant]
     Active Substance: ENOXAPARIN SODIUM
  13. NEXIUM [Concomitant]
     Active Substance: ESOMEPRAZOLE MAGNESIUM
  14. ADDERALL [Concomitant]
     Active Substance: AMPHETAMINE ASPARTATE\AMPHETAMINE SULFATE\DEXTROAMPHETAMINE SACCHARATE\DEXTROAMPHETAMINE SULFATE
  15. BIOTIN [Concomitant]
     Active Substance: BIOTIN
  16. CALCIUM [Concomitant]
     Active Substance: CALCIUM
  17. SITOSTEROL [Concomitant]
  18. COMETRIQ [Suspect]
     Active Substance: CABOZANTINIB S-MALATE
     Dosage: 140 MG, QD
     Route: 048
     Dates: start: 201411, end: 20150810
  19. PEPTO-BISMOL [Concomitant]
     Active Substance: BISMUTH SUBSALICYLATE
  20. MUSHROOM MATRIX [Concomitant]
  21. NORCO [Concomitant]
     Active Substance: ACETAMINOPHEN\HYDROCODONE BITARTRATE
  22. ZOFRAN [Concomitant]
     Active Substance: ONDANSETRON HYDROCHLORIDE
  23. CLINDAMYCIN. [Concomitant]
     Active Substance: CLINDAMYCIN
  24. COMETRIQ [Suspect]
     Active Substance: CABOZANTINIB S-MALATE
     Indication: RENAL CANCER
     Dosage: 140 MG, QD
     Route: 048
     Dates: start: 20140114, end: 201407
  25. AMLODIPINE [Concomitant]
     Active Substance: AMLODIPINE BESYLATE
  26. REGENECARE HA [Concomitant]
     Active Substance: LIDOCAINE HYDROCHLORIDE
  27. TRIAMCINOLONE [Concomitant]
     Active Substance: TRIAMCINOLONE
  28. NETTLE [Concomitant]
     Active Substance: URTICA DIOICA POLLEN
  29. PYGEUM [Concomitant]
     Active Substance: PYGEUM
  30. PROBIOTIC [Concomitant]
     Active Substance: PROBIOTICS NOS
  31. IMODIUM [Concomitant]
     Active Substance: LOPERAMIDE HYDROCHLORIDE
  32. MULTIVITAMIN [Concomitant]
     Active Substance: VITAMINS
  33. XANAX [Concomitant]
     Active Substance: ALPRAZOLAM
  34. DESONIDE. [Concomitant]
     Active Substance: DESONIDE
  35. COQ10 [Concomitant]
     Active Substance: UBIDECARENONE

REACTIONS (13)
  - Faeces pale [Unknown]
  - Decreased appetite [Unknown]
  - Thyroid disorder [Unknown]
  - Malignant neoplasm progression [Fatal]
  - Hair colour changes [Not Recovered/Not Resolved]
  - Pain in extremity [Unknown]
  - Palmar-plantar erythrodysaesthesia syndrome [Not Recovered/Not Resolved]
  - Memory impairment [Unknown]
  - Dysgeusia [Not Recovered/Not Resolved]
  - Fatigue [Not Recovered/Not Resolved]
  - Steatorrhoea [Unknown]
  - Oral pain [Unknown]
  - Off label use [Unknown]
